FAERS Safety Report 11157679 (Version 3)
Quarter: 2017Q1

REPORT INFORMATION
  Report Type: Spontaneous
  Country: US (occurrence: US)
  Receive Date: 20150603
  Receipt Date: 20170329
  Transmission Date: 20170428
  Serious: Yes (Other)
  Sender: FDA-Public Use
  Company Number: US-LUPIN PHARMACEUTICALS INC.-E2B_00003605

PATIENT
  Sex: Male
  Weight: 83.46 kg

DRUGS (1)
  1. SIMVASTATIN TABLETS USP, 20 MG [Suspect]
     Active Substance: SIMVASTATIN
     Indication: HYPERCHOLESTEROLAEMIA
     Dosage: 20 MG,QD,
     Route: 048
     Dates: end: 201504

REACTIONS (3)
  - Pain in extremity [Not Recovered/Not Resolved]
  - Muscle injury [Unknown]
  - Muscular weakness [Not Recovered/Not Resolved]
